FAERS Safety Report 5263300-1 (Version None)
Quarter: 2007Q1

REPORT INFORMATION
  Report Type: 
  Country: None (occurrence: None)
  Receive Date: 20061219
  Receipt Date: 20060905
  Transmission Date: 20070707
  Serious: No
  Sender: FDA-Public Use
  Company Number: 2006US002040

PATIENT
  Age: 79 Year
  Sex: Male

DRUGS (3)
  1. VESICARE [Suspect]
     Indication: INCONTINENCE
     Dosage: 5 MG, ORAL
     Route: 048
     Dates: start: 20051001, end: 20060301
  2. VESICARE [Suspect]
     Indication: INCONTINENCE
     Dosage: 5 MG, ORAL
     Route: 048
     Dates: start: 20060801
  3. HYTRIN [Concomitant]

REACTIONS (2)
  - DRY MOUTH [None]
  - VISION BLURRED [None]
